FAERS Safety Report 5640286-9 (Version None)
Quarter: 2008Q1

REPORT INFORMATION
  Report Type: 
  Country: None (occurrence: None)
  Receive Date: 20080227
  Receipt Date: 20080214
  Transmission Date: 20080703
  Serious: No
  Sender: FDA-Public Use
  Company Number: US-BAXTER-2008BH001304

PATIENT
  Age: 66 Year
  Sex: Female
  Weight: 70 kg

DRUGS (12)
  1. HEPARIN SODIUM [Suspect]
     Indication: PROPHYLAXIS
     Route: 033
     Dates: start: 20070801
  2. HEPARIN SODIUM [Suspect]
     Route: 033
     Dates: end: 20080101
  3. HEPARIN SODIUM [Suspect]
     Route: 033
     Dates: end: 20080101
  4. PREDNISONE TAB [Concomitant]
     Indication: DRUG USE FOR UNKNOWN INDICATION
     Route: 048
  5. ROCALTROL [Concomitant]
     Indication: RENAL DISORDER
     Route: 048
  6. ALLOPURINOL [Concomitant]
     Indication: GOUT
     Route: 048
  7. NEXIUM                                  /UNK/ [Concomitant]
     Indication: GASTRIC ULCER
     Route: 048
  8. PHOSLO [Concomitant]
     Indication: RENAL FAILURE CHRONIC
     Route: 048
  9. DIGITEK [Concomitant]
     Indication: CARDIAC DISORDER
     Route: 048
  10. PERCOCET [Concomitant]
     Indication: DRUG USE FOR UNKNOWN INDICATION
     Route: 048
  11. ASPIRIN [Concomitant]
     Indication: DRUG USE FOR UNKNOWN INDICATION
     Dosage: DOSE UNIT:UNKNOWN
     Route: 048
  12. DIANEAL [Concomitant]
     Indication: RENAL FAILURE CHRONIC
     Route: 033

REACTIONS (10)
  - ANOREXIA [None]
  - ASTHENIA [None]
  - BLOOD PRESSURE DECREASED [None]
  - DEHYDRATION [None]
  - DIZZINESS [None]
  - FAECES DISCOLOURED [None]
  - GASTRIC ULCER [None]
  - ORAL CANDIDIASIS [None]
  - RETCHING [None]
  - VOMITING [None]
